FAERS Safety Report 9938136 (Version 2)
Quarter: 2014Q2

REPORT INFORMATION
  Report Type: Spontaneous
  Country: US (occurrence: US)
  Receive Date: 20140303
  Receipt Date: 20140430
  Transmission Date: 20141212
  Serious: Yes (Death, Other)
  Sender: FDA-Public Use
  Company Number: US-BRISTOL-MYERS SQUIBB COMPANY-20320982

PATIENT
  Age: 59 Year
  Sex: Female

DRUGS (12)
  1. BYETTA [Suspect]
     Dates: start: 200712, end: 201009
  2. JANUVIA [Suspect]
     Dates: start: 20080701, end: 20100120
  3. JANUMET [Suspect]
     Dates: start: 20080701, end: 20091125
  4. VICTOZA [Suspect]
     Dates: start: 201009, end: 201112
  5. GLUCOPHAGE [Concomitant]
  6. SIMVASTATIN [Concomitant]
  7. AMLODIPINE [Concomitant]
  8. AMLODIPINE [Concomitant]
  9. HYZAAR [Concomitant]
  10. CENTRUM SILVER [Concomitant]
  11. PRANDIN [Concomitant]
  12. VITAMIN D [Concomitant]

REACTIONS (3)
  - Pancreatic carcinoma [Fatal]
  - Skin lesion [Unknown]
  - Sepsis [Unknown]
